FAERS Safety Report 7748762-X (Version None)
Quarter: 2011Q3

REPORT INFORMATION
  Report Type: 
  Country: None (occurrence: None)
  Receive Date: 20110913
  Receipt Date: 20110913
  Transmission Date: 20111222
  Serious: Yes (Hospitalization)
  Sender: FDA-Public Use
  Company Number: None

PATIENT
  Sex: Female

DRUGS (1)
  1. HUMIRA [Suspect]
     Indication: PSORIASIS
     Dosage: 40MG SUBCUTANEOUSLY
     Route: 058
     Dates: start: 20091113

REACTIONS (10)
  - STAPHYLOCOCCAL INFECTION [None]
  - GLOSSODYNIA [None]
  - OROPHARYNGEAL PAIN [None]
  - CELLULITIS [None]
  - PSORIASIS [None]
  - FURUNCLE [None]
  - CANDIDIASIS [None]
  - INFECTION IN AN IMMUNOCOMPROMISED HOST [None]
  - TONGUE COATED [None]
  - PHARYNGEAL OEDEMA [None]
